FAERS Safety Report 8552488-2 (Version None)
Quarter: 2012Q3

REPORT INFORMATION
  Report Type: 
  Country: None (occurrence: None)
  Receive Date: 20120719
  Receipt Date: 20120704
  Transmission Date: 20120928
  Serious: Yes (Hospitalization)
  Sender: FDA-Public Use
  Company Number: 2012US-57055

PATIENT

DRUGS (8)
  1. PANTOPRAZOLE [Suspect]
     Indication: PROPHYLAXIS
     Dosage: 40 MG DAILY, SUBCUTANEOUS, UNK
     Route: 058
  2. TIROFIBAN HYDROCHLORIDE (TIROFIBAN HYDROCHLORIDE) [Concomitant]
  3. ENOXAPARIN SODIUM [Concomitant]
  4. ASPIRIN [Concomitant]
  5. PANTOPRAZOLE [Suspect]
     Indication: PROPHYLAXIS
     Dosage: 40 MG, BID, ORAL
     Route: 048
  6. CLOPIDOGREL [Concomitant]
  7. ENOXAPARIN SODIUM [Concomitant]
  8. TIROFIBAN HYDROCHLORIDE (TIROFIBAN HYDROCHLORIDE) [Concomitant]

REACTIONS (2)
  - DISEASE RECURRENCE [None]
  - MYOCARDIAL INFARCTION [None]
